FAERS Safety Report 9825620 (Version 2)
Quarter: 2014Q4

REPORT INFORMATION
  Report Type: Spontaneous
  Country: US (occurrence: None)
  Receive Date: 20131028
  Receipt Date: 20141015
  Transmission Date: 20150529
  Serious: No
  Sender: FDA-Public Use
  Company Number: 2013US002357

PATIENT
  Age: 66 Year
  Sex: Female

DRUGS (1)
  1. ICLUSIG [Suspect]
     Active Substance: PONATINIB
     Indication: CHRONIC MYELOID LEUKAEMIA
     Route: 048
     Dates: start: 20130307

REACTIONS (2)
  - Rash [None]
  - Urticaria [None]

NARRATIVE: CASE EVENT DATE: 201308
